FAERS Safety Report 24592644 (Version 4)
Quarter: 2025Q1

REPORT INFORMATION
  Report Type: Report from Study
  Country: DE (occurrence: DE)
  Receive Date: 20241108
  Receipt Date: 20250201
  Transmission Date: 20250409
  Serious: Yes (Hospitalization)
  Sender: ROCHE
  Company Number: DE-ROCHE-10000075876

PATIENT
  Age: 81 Year
  Sex: Female

DRUGS (8)
  1. ADO-TRASTUZUMAB EMTANSINE [Suspect]
     Active Substance: ADO-TRASTUZUMAB EMTANSINE
     Indication: Breast cancer
     Route: 040
     Dates: start: 20230807, end: 20240513
  2. METOPROLOL [Concomitant]
     Active Substance: METOPROLOL
  3. TORSEMIDE [Concomitant]
     Active Substance: TORSEMIDE
  4. SIMVASTATIN [Concomitant]
     Active Substance: SIMVASTATIN
  5. LERCANIDIPINE HYDROCHLORIDE [Concomitant]
     Active Substance: LERCANIDIPINE HYDROCHLORIDE
  6. PANTOPRAZOL A [Concomitant]
  7. EDOXABAN [Concomitant]
     Active Substance: EDOXABAN
  8. kalinor [Concomitant]
     Dates: start: 20240424, end: 20240601

REACTIONS (1)
  - Liver disorder [Recovering/Resolving]

NARRATIVE: CASE EVENT DATE: 20240402
